FAERS Safety Report 7024353-3 (Version None)
Quarter: 2010Q3

REPORT INFORMATION
  Report Type: 
  Country: None (occurrence: None)
  Receive Date: 20100929
  Receipt Date: 20100922
  Transmission Date: 20110219
  Serious: Yes (Hospitalization)
  Sender: FDA-Public Use
  Company Number: 008572

PATIENT
  Age: 70 Year
  Sex: Female

DRUGS (1)
  1. SAMSCA [Suspect]
     Indication: HYPONATRAEMIA
     Dosage: 7.5 MG, ORAL
     Route: 048
     Dates: start: 20100115

REACTIONS (3)
  - LABORATORY TEST INTERFERENCE [None]
  - LIVER DISORDER [None]
  - URINARY INCONTINENCE [None]
